FAERS Safety Report 9961827 (Version 2)
Quarter: 2014Q1

REPORT INFORMATION
  Report Type: Report from Study
  Country: PR (occurrence: PR)
  Receive Date: 20140305
  Receipt Date: 20140305
  Transmission Date: 20141002
  Serious: No
  Sender: FDA-Public Use
  Company Number: PR-ABBVIE-12P-131-1019737-00

PATIENT
  Sex: Female
  Weight: 77.18 kg

DRUGS (6)
  1. HUMIRA [Suspect]
     Indication: RHEUMATOID ARTHRITIS
     Route: 058
     Dates: start: 2005
  2. LANTUS [Concomitant]
     Indication: DIABETES MELLITUS
     Route: 058
  3. HUMALOG [Concomitant]
     Indication: DIABETES MELLITUS
     Dosage: 5 TO 10 UNITS
     Route: 058
  4. SYNTHROID [Concomitant]
     Indication: HYPOTHYROIDISM
     Route: 048
  5. LOSARTAN [Concomitant]
     Indication: PROPHYLAXIS
     Route: 048
  6. MOBIC [Concomitant]
     Indication: PAIN
     Route: 048

REACTIONS (1)
  - Pharyngitis [Recovered/Resolved]
